FAERS Safety Report 9335071 (Version 1)
Quarter: 2013Q2

REPORT INFORMATION
  Report Type: Report from Study
  Country: DE (occurrence: DE)
  Receive Date: 20130606
  Receipt Date: 20130606
  Transmission Date: 20140414
  Serious: Yes (Hospitalization)
  Sender: FDA-Public Use
  Company Number: DE-GLAXOSMITHKLINE-A0956578C

PATIENT
  Age: 55 Year
  Sex: Female
  Weight: 64 kg

DRUGS (1)
  1. GSK1120212 [Suspect]
     Indication: LEUKAEMIA RECURRENT
     Dosage: 2MG PER DAY
     Route: 048
     Dates: start: 20111103

REACTIONS (1)
  - Acute myocardial infarction [Recovered/Resolved]
